FAERS Safety Report 6732976-1 (Version None)
Quarter: 2010Q2

REPORT INFORMATION
  Report Type: 
  Country: None (occurrence: None)
  Receive Date: 20100519
  Receipt Date: 20080528
  Transmission Date: 20101027
  Serious: Yes (Life-Threatening)
  Sender: FDA-Public Use
  Company Number: US-GENENTECH-301936

PATIENT
  Sex: Female
  Weight: 59 kg

DRUGS (3)
  1. OMALIZUMAB [Suspect]
     Indication: ASTHMA
     Dosage: 150 MG, UNK
     Route: 058
     Dates: start: 20050901
  2. ALBUTEROL [Concomitant]
     Indication: ASTHMA
  3. QVAR 40 [Concomitant]
     Indication: ASTHMA

REACTIONS (1)
  - DRUG HYPERSENSITIVITY [None]
